FAERS Safety Report 7035220-3 (Version None)
Quarter: 2010Q4

REPORT INFORMATION
  Report Type: 
  Country: None (occurrence: None)
  Receive Date: 20101008
  Receipt Date: 20100924
  Transmission Date: 20110411
  Serious: Yes (Other)
  Sender: FDA-Public Use
  Company Number: GB-PFIZER INC-2010116353

PATIENT
  Age: 36 Year
  Sex: Female

DRUGS (2)
  1. DEPO-PROVERA [Suspect]
     Indication: CONTRACEPTION
     Route: 030
  2. TERBINAFINE [Interacting]
     Indication: ONYCHOMYCOSIS
     Dosage: 250 MG, 1X/DAY
     Route: 048
     Dates: start: 20100629

REACTIONS (2)
  - DRUG INTERACTION [None]
  - METRORRHAGIA [None]
